FAERS Safety Report 5145992-0 (Version None)
Quarter: 2006Q4

REPORT INFORMATION
  Report Type: 
  Country: None (occurrence: None)
  Receive Date: 20061108
  Receipt Date: 20061027
  Transmission Date: 20070319
  Serious: Yes (Other)
  Sender: FDA-Public Use
  Company Number: CA-AVENTIS-200621221GDDC

PATIENT
  Age: 48 Year
  Sex: Male

DRUGS (7)
  1. LANTUS [Suspect]
     Indication: DIABETES MELLITUS
     Dosage: DOSE: UNK
     Route: 058
     Dates: start: 20060329
  2. VIREAD [Concomitant]
     Indication: HIV INFECTION
     Route: 048
  3. LAMIVUDINE [Concomitant]
     Indication: HIV INFECTION
     Route: 048
  4. VIRAMUNE [Concomitant]
     Indication: HIV INFECTION
     Route: 048
  5. ACYCLOVIR [Concomitant]
     Indication: HIV INFECTION
     Route: 048
  6. ALTACE [Concomitant]
     Route: 048
  7. ACTONEL [Concomitant]
     Route: 048

REACTIONS (4)
  - DISORIENTATION [None]
  - HYPERGLYCAEMIA [None]
  - LOSS OF CONSCIOUSNESS [None]
  - PHARMACEUTICAL PRODUCT COMPLAINT [None]
